FAERS Safety Report 5343402-1 (Version None)
Quarter: 2007Q2

REPORT INFORMATION
  Report Type: 
  Country: None (occurrence: None)
  Receive Date: 20070531
  Receipt Date: 20070516
  Transmission Date: 20071010
  Serious: Yes (Other)
  Sender: FDA-Public Use
  Company Number: GXKR2007CA04487

PATIENT
  Sex: Male

DRUGS (1)
  1. BUPROPION HCL [Suspect]
     Dosage: 100 MG, ORAL
     Route: 048

REACTIONS (4)
  - AGGRESSION [None]
  - ANXIETY [None]
  - DRUG WITHDRAWAL SYNDROME [None]
  - PETIT MAL EPILEPSY [None]
